FAERS Safety Report 17609004 (Version 1)
Quarter: 2020Q2

REPORT INFORMATION
  Report Type: Other
  Country: CA (occurrence: CA)
  Receive Date: 20200401
  Receipt Date: 20200401
  Transmission Date: 20200713
  Serious: Yes (Other)
  Sender: FDA-Public Use
  Company Number: CA-APOTEX-2020AP009194

PATIENT
  Age: 7 Year
  Sex: Female

DRUGS (2)
  1. ADVIL (MEFENAMIC ACID) [Concomitant]
     Active Substance: MEFENAMIC ACID
     Indication: PRODUCT USED FOR UNKNOWN INDICATION
     Dosage: UNK
     Route: 065
  2. ONDANSETRON [Suspect]
     Active Substance: ONDANSETRON
     Indication: GASTROENTERITIS
     Dosage: 4 MG, UNK TOTAL
     Route: 048

REACTIONS (13)
  - Monocyte count increased [Recovered/Resolved]
  - Red blood cell count increased [Recovered/Resolved]
  - Chills [Recovered/Resolved]
  - Neutrophil count increased [Recovered/Resolved]
  - White blood cell count increased [Recovered/Resolved]
  - Blood lactic acid increased [Recovered/Resolved]
  - Carbon dioxide decreased [Recovered/Resolved]
  - Blood bilirubin increased [Recovered/Resolved]
  - Urticaria [Recovered/Resolved]
  - Haemoglobin increased [Recovered/Resolved]
  - Hypotension [Recovered/Resolved]
  - Pruritus [Recovered/Resolved]
  - Tachycardia [Recovered/Resolved]
